FAERS Safety Report 5528141-6 (Version None)
Quarter: 2007Q4

REPORT INFORMATION
  Report Type: 
  Country: None (occurrence: None)
  Receive Date: 20071121
  Receipt Date: 20071114
  Transmission Date: 20080405
  Serious: Yes (Death, Hospitalization, Other)
  Sender: FDA-Public Use
  Company Number: 220001M07AUS

PATIENT
  Age: 19 Year
  Sex: Male

DRUGS (1)
  1. SAIZEN [Suspect]
     Indication: GROWTH HORMONE DEFICIENCY
     Dosage: 1.25 MG, 6 IN 1 WEEKS, 0.7 MG, 6 IN 1 WEEKS
     Dates: start: 19940704, end: 20040310

REACTIONS (5)
  - ACOUSTIC NEUROMA [None]
  - HYDROCEPHALUS [None]
  - NEOPLASM PROGRESSION [None]
  - NEURILEMMOMA MALIGNANT [None]
  - SEPSIS [None]
